FAERS Safety Report 8532332-X (Version None)
Quarter: 2012Q3

REPORT INFORMATION
  Report Type: 
  Country: None (occurrence: None)
  Receive Date: 20120724
  Receipt Date: 20120711
  Transmission Date: 20120928
  Serious: Yes (Hospitalization)
  Sender: FDA-Public Use
  Company Number: US-BIOGENIDEC-2012BI022268

PATIENT
  Age: 48 Year
  Sex: Female

DRUGS (11)
  1. TYSABRI [Suspect]
     Indication: MULTIPLE SCLEROSIS
     Route: 042
     Dates: start: 20110824
  2. MAXALT [Concomitant]
     Indication: HEADACHE
  3. ZOLOFT [Concomitant]
     Indication: DEPRESSION
  4. ALLEGRA [Concomitant]
     Indication: MULTIPLE ALLERGIES
  5. PRILOSEC [Concomitant]
     Indication: GASTROOESOPHAGEAL REFLUX DISEASE
  6. TYLENOL [Concomitant]
  7. MVT [Concomitant]
  8. CRESTOR [Concomitant]
     Indication: HYPERCHOLESTEROLAEMIA
  9. FOLIC ACID [Concomitant]
  10. VITAMIN D [Concomitant]
  11. LASIX [Concomitant]
     Indication: OEDEMA

REACTIONS (1)
  - MYELOFIBROSIS [None]
